FAERS Safety Report 7948730 (Version 2)
Quarter: 2013Q2

REPORT INFORMATION
  Report Type: Spontaneous
  Country: US (occurrence: GB)
  Receive Date: 20110517
  Receipt Date: 20130408
  Transmission Date: 20140414
  Serious: Yes (Death, Hospitalization)
  Sender: FDA-Public Use
  Company Number: GB-PFIZER INC-HQWYE370702AUG07

PATIENT
  Age: 16 Month
  Sex: 0

DRUGS (1)
  1. ANADIN EXTRA [Suspect]
     Dosage: 469 MG/KG, SINGLE
     Route: 048

REACTIONS (5)
  - Overdose [Fatal]
  - Apnoea [Fatal]
  - Sepsis [Fatal]
  - Convulsion [Fatal]
  - Pneumonia aspiration [Fatal]
